FAERS Safety Report 5929486-8 (Version None)
Quarter: 2008Q3

REPORT INFORMATION
  Report Type: 
  Country: None (occurrence: None)
  Receive Date: 20080930
  Receipt Date: 20080820
  Transmission Date: 20090109
  Serious: Yes (Other)
  Sender: FDA-Public Use
  Company Number: US-GDP-08404505

PATIENT
  Age: 18 Year
  Sex: Male

DRUGS (2)
  1. DIFFERIN [Suspect]
     Indication: ACNE
     Dosage: (1 DF QD TOPICAL)
     Route: 061
     Dates: start: 20080101
  2. COSMETICS [Concomitant]

REACTIONS (1)
  - MILIA [None]
